FAERS Safety Report 26048830 (Version 2)
Quarter: 2025Q4

REPORT INFORMATION
  Report Type: Spontaneous
  Country: EU (occurrence: EU)
  Receive Date: 20251115
  Receipt Date: 20251118
  Transmission Date: 20260118
  Serious: Yes (Other)
  Sender: AUROBINDO
  Company Number: EU-LRB-01094014

PATIENT
  Age: 44 Year
  Sex: Female
  Weight: 73 kg

DRUGS (1)
  1. ESTRADIOL\LEVONORGESTREL [Suspect]
     Active Substance: ESTRADIOL\LEVONORGESTREL
     Indication: Menopause
     Dosage: 1 DOSAGE FORM, ONCE A DAY
     Dates: start: 20250915, end: 20251022

REACTIONS (2)
  - Suicidal ideation [Recovered/Resolved]
  - Symptom recurrence [Unknown]
